FAERS Safety Report 19376982 (Version 1)
Quarter: 2021Q2

REPORT INFORMATION
  Report Type: Spontaneous
  Country: IR (occurrence: IR)
  Receive Date: 20210604
  Receipt Date: 20210604
  Transmission Date: 20210717
  Serious: Yes (Death)
  Sender: FDA-Public Use
  Company Number: IR-CUMBERLAND-2021-IR-000001

PATIENT
  Age: 14 Year
  Sex: Female

DRUGS (6)
  1. ACETADOTE [Suspect]
     Active Substance: ACETYLCYSTEINE
  2. CHLORPHENAMINE [Concomitant]
     Active Substance: CHLORPHENIRAMINE MALEATE
  3. EPINEPHRINE. [Concomitant]
     Active Substance: EPINEPHRINE
  4. VITAMIN K [Concomitant]
     Active Substance: PHYTONADIONE
     Route: 048
  5. NOREPINEPHRINE. [Concomitant]
     Active Substance: NOREPINEPHRINE
     Dosage: 2?5 MICROGRAMS/KG/MIN NOREPINEPHRINE INFUSION
     Route: 042
  6. HYDROCORTISONE. [Concomitant]
     Active Substance: HYDROCORTISONE

REACTIONS (7)
  - Acute kidney injury [Fatal]
  - Pulmonary haemorrhage [Fatal]
  - Anaphylactic shock [Fatal]
  - Coagulopathy [Fatal]
  - Platelet count decreased [Not Recovered/Not Resolved]
  - Metabolic acidosis [Fatal]
  - Product administration error [Fatal]
